FAERS Safety Report 15638305 (Version 1)
Quarter: 2018Q4

REPORT INFORMATION
  Report Type: Spontaneous
  Country: US (occurrence: US)
  Receive Date: 20181120
  Receipt Date: 20181120
  Transmission Date: 20190205
  Serious: No
  Sender: FDA-Public Use
  Company Number: US-JNJFOC-20180829592

PATIENT
  Sex: Female
  Weight: 38 kg

DRUGS (9)
  1. IMBRUVICA [Suspect]
     Active Substance: IBRUTINIB
     Indication: PRODUCT USED FOR UNKNOWN INDICATION
     Route: 065
     Dates: start: 20180406, end: 2018
  2. IMBRUVICA [Suspect]
     Active Substance: IBRUTINIB
     Indication: PRODUCT USED FOR UNKNOWN INDICATION
     Route: 065
     Dates: start: 2018
  3. MVI [Concomitant]
     Active Substance: VITAMINS
  4. TRAVATAN [Concomitant]
     Active Substance: TRAVOPROST
  5. AZOPT [Concomitant]
     Active Substance: BRINZOLAMIDE
  6. IMBRUVICA [Concomitant]
     Active Substance: IBRUTINIB
     Dates: start: 20170601, end: 20180405
  7. ZOLOFT [Concomitant]
     Active Substance: SERTRALINE HYDROCHLORIDE
  8. CALCIUM [Concomitant]
     Active Substance: CALCIUM
  9. VITAMIN D3 [Concomitant]
     Active Substance: CHOLECALCIFEROL

REACTIONS (1)
  - Adverse event [Not Recovered/Not Resolved]
